FAERS Safety Report 7215864-6 (Version None)
Quarter: 2011Q1

REPORT INFORMATION
  Report Type: 
  Country: None (occurrence: None)
  Receive Date: 20110107
  Receipt Date: 20110104
  Transmission Date: 20110831
  Serious: Yes (Death)
  Sender: FDA-Public Use
  Company Number: MY-PFIZER INC-2011001028

PATIENT
  Age: 60 Year
  Sex: Male

DRUGS (3)
  1. RANITIDINE [Concomitant]
  2. TAZOCIN [Suspect]
     Indication: PROPHYLAXIS
     Dosage: 14G/ DAY
     Route: 042
  3. TRAMADOL [Concomitant]

REACTIONS (1)
  - ANAPHYLACTIC REACTION [None]
